FAERS Safety Report 9422086 (Version 2)
Quarter: 2013Q3

REPORT INFORMATION
  Report Type: Spontaneous
  Country: IT (occurrence: IT)
  Receive Date: 20130726
  Receipt Date: 20130807
  Transmission Date: 20140515
  Serious: Yes (Other)
  Sender: FDA-Public Use
  Company Number: IT-ROCHE-1253303

PATIENT
  Age: 22 Year
  Sex: Male

DRUGS (2)
  1. RIVOTRIL [Suspect]
     Indication: DRUG DEPENDENCE
     Route: 048
  2. NOZINAN (ITALY) [Concomitant]
     Indication: DRUG DEPENDENCE
     Route: 048

REACTIONS (3)
  - Syncope [Recovering/Resolving]
  - Sopor [Recovering/Resolving]
  - Drug abuse [Unknown]
